FAERS Safety Report 20871009 (Version 1)
Quarter: 2022Q2

REPORT INFORMATION
  Report Type: Spontaneous
  Country: US (occurrence: US)
  Receive Date: 20220525
  Receipt Date: 20220525
  Transmission Date: 20220721
  Serious: No
  Sender: FDA-Public Use
  Company Number: US-APOTEX-2022AP007295

PATIENT
  Sex: Male

DRUGS (9)
  1. BRIMONIDINE TARTRATE\TIMOLOL MALEATE [Suspect]
     Active Substance: BRIMONIDINE TARTRATE\TIMOLOL MALEATE
     Indication: Intraocular pressure increased
     Dosage: 2 DOSAGE FORM, BID 1 DROP IN EACH EYE
     Route: 047
  2. BRINZOLAMIDE [Concomitant]
     Active Substance: BRINZOLAMIDE
     Indication: Intraocular pressure increased
     Dosage: 2 DOSAGE FORM, BID, 1 DROP TWICE A DAY IN EACH EYE
     Route: 065
  3. BRINZOLAMIDE [Concomitant]
     Active Substance: BRINZOLAMIDE
     Indication: Dry eye
  4. LATANOPROST [Concomitant]
     Active Substance: LATANOPROST
     Indication: Intraocular pressure increased
     Dosage: 2 DOSAGE FORM, Q.H.S.1 DROP IN EACH EYE AT NIGHT
     Route: 065
  5. LATANOPROST [Concomitant]
     Active Substance: LATANOPROST
     Indication: Dry eye
  6. RHOPRESSA [Concomitant]
     Active Substance: NETARSUDIL MESYLATE
     Indication: Intraocular pressure increased
     Dosage: 2 DOSAGE FORM, Q.H.S.1 DROP IN EACH EYE AT NIGHT
     Route: 065
  7. RHOPRESSA [Concomitant]
     Active Substance: NETARSUDIL MESYLATE
     Indication: Dry eye
  8. RESTASIS [Concomitant]
     Active Substance: CYCLOSPORINE
     Indication: Intraocular pressure increased
     Dosage: 2 DOSAGE FORM, Q.AMDROP IN EACH EYE IN THE MORNING
     Route: 065
  9. RESTASIS [Concomitant]
     Active Substance: CYCLOSPORINE
     Indication: Dry eye

REACTIONS (3)
  - Extra dose administered [Unknown]
  - Product delivery mechanism issue [Unknown]
  - No adverse event [Unknown]
